FAERS Safety Report 11872923 (Version 1)
Quarter: 2015Q4

REPORT INFORMATION
  Report Type: Spontaneous
  Country: US (occurrence: US)
  Receive Date: 20151228
  Receipt Date: 20151228
  Transmission Date: 20160305
  Serious: Yes (Other)
  Sender: FDA-Public Use
  Company Number: US-PFIZER INC-2015450256

PATIENT
  Age: 56 Year
  Sex: Female

DRUGS (9)
  1. CELEBREX [Suspect]
     Active Substance: CELECOXIB
     Indication: ARTHRITIS
     Dosage: 100 MG, 1X/DAY
     Route: 048
     Dates: start: 1997
  2. CETIRIZINE [Concomitant]
     Active Substance: CETIRIZINE HYDROCHLORIDE
     Indication: HYPERSENSITIVITY
     Dosage: 10 MG, UNK
  3. BABY ASPIRIN [Concomitant]
     Active Substance: ASPIRIN
  4. METOPROLOL [Concomitant]
     Active Substance: METOPROLOL
     Indication: ARRHYTHMIA
     Dosage: 5 MG, ITS A TABLET TAKING AT NIGHT TIME
  5. XOPENEX [Concomitant]
     Active Substance: LEVALBUTEROL HYDROCHLORIDE
     Indication: ASTHMA
     Dosage: 45 UG, AS NEEDED EVERY 46 HOURS AND RIGHT NOW SHE WAS USING 2 PUFFS ONCE A DAY
  6. MONTELUKAST [Concomitant]
     Active Substance: MONTELUKAST SODIUM
     Indication: ASTHMA
     Dosage: 10 MG, WAS TAKING AT NIGHT
  7. COUMADIN [Concomitant]
     Active Substance: WARFARIN SODIUM
  8. CELEBREX [Suspect]
     Active Substance: CELECOXIB
     Dosage: 200 MG, 1X/DAY
     Route: 048
  9. QVAR [Concomitant]
     Active Substance: BECLOMETHASONE DIPROPIONATE
     Indication: ASTHMA
     Dosage: 160 UG, 2X/DAY, 80 MCG 2 PUFF TWICE A DAY

REACTIONS (7)
  - Dysstasia [Unknown]
  - Injury [Unknown]
  - Condition aggravated [Unknown]
  - Drug ineffective [Unknown]
  - Arthritis [Unknown]
  - Pain [Not Recovered/Not Resolved]
  - Intentional product use issue [Unknown]

NARRATIVE: CASE EVENT DATE: 20151211
